FAERS Safety Report 8980740 (Version 2)
Quarter: 2013Q2

REPORT INFORMATION
  Report Type: Report from Study
  Country: US (occurrence: US)
  Receive Date: 20121221
  Receipt Date: 20130515
  Transmission Date: 20140414
  Serious: Yes (Hospitalization)
  Sender: FDA-Public Use
  Company Number: US-ACTELION-A-NJ2012-76683

PATIENT
  Age: 81 Year
  Sex: Female

DRUGS (2)
  1. VENTAVIS [Suspect]
     Indication: PULMONARY ARTERIAL HYPERTENSION
     Dosage: UNK
     Route: 055
  2. SILDENAFIL [Concomitant]

REACTIONS (4)
  - Haemoglobin decreased [Unknown]
  - Transfusion [Unknown]
  - Ascites [Unknown]
  - Paracentesis [Unknown]
